FAERS Safety Report 14108324 (Version 3)
Quarter: 2018Q1

REPORT INFORMATION
  Report Type: Spontaneous
  Country: AT (occurrence: AT)
  Receive Date: 20171019
  Receipt Date: 20180103
  Transmission Date: 20180508
  Serious: Yes (Hospitalization)
  Sender: FDA-Public Use
  Company Number: AT-MYLANLABS-2017M1065620

PATIENT
  Age: 67 Year
  Sex: Female

DRUGS (36)
  1. SEROQUEL [Suspect]
     Active Substance: QUETIAPINE FUMARATE
     Indication: PRODUCT USED FOR UNKNOWN INDICATION
     Dosage: 400 MG, UNK
     Route: 048
     Dates: start: 20170614, end: 20170616
  2. SEROQUEL [Suspect]
     Active Substance: QUETIAPINE FUMARATE
     Dosage: 250 MG, UNK
     Route: 048
     Dates: start: 20170619, end: 20170619
  3. PRAXITEN [Concomitant]
     Active Substance: OXAZEPAM
     Dosage: 100 MG, UNK
     Route: 048
     Dates: start: 20170621, end: 20170626
  4. PRAXITEN [Concomitant]
     Active Substance: OXAZEPAM
     Dosage: 50 MG, UNK
     Route: 048
     Dates: start: 20170626, end: 20170630
  5. SELEXID /00445301/ [Concomitant]
     Active Substance: AMDINOCILLIN PIVOXIL HYDROCHLORIDE
     Indication: PRODUCT USED FOR UNKNOWN INDICATION
     Dosage: 400 MG, UNK
     Dates: start: 20170627, end: 20170630
  6. LEPONEX [Suspect]
     Active Substance: CLOZAPINE
     Dosage: 350 MG, UNK
     Route: 048
     Dates: start: 20170620, end: 20170620
  7. SERTRALINE [Suspect]
     Active Substance: SERTRALINE HYDROCHLORIDE
     Indication: PRODUCT USED FOR UNKNOWN INDICATION
     Dosage: 100 MG, UNK
     Route: 048
     Dates: start: 20170614, end: 20170619
  8. PRAXITEN [Concomitant]
     Active Substance: OXAZEPAM
     Dosage: 90 MG, UNK
     Route: 048
     Dates: start: 20170618, end: 20170618
  9. LOVENOX [Concomitant]
     Active Substance: ENOXAPARIN SODIUM
     Indication: PRODUCT USED FOR UNKNOWN INDICATION
     Dosage: 40 MG, UNK
     Dates: start: 20170621, end: 20170729
  10. RISPERDAL [Concomitant]
     Active Substance: RISPERIDONE
     Dosage: 4 MG, UNK
     Dates: start: 20170701, end: 20170702
  11. ABILIFY [Concomitant]
     Active Substance: ARIPIPRAZOLE
     Indication: PRODUCT USED FOR UNKNOWN INDICATION
     Dosage: 5 MG, UNK
     Dates: start: 20170725, end: 20170726
  12. LEPONEX [Suspect]
     Active Substance: CLOZAPINE
     Indication: PRODUCT USED FOR UNKNOWN INDICATION
     Dosage: 400 MG, UNK
     Route: 048
     Dates: start: 20170614, end: 20170619
  13. AKINETON [Suspect]
     Active Substance: BIPERIDEN HYDROCHLORIDE
     Dosage: 4 MG, UNK
     Route: 048
     Dates: start: 20170703, end: 20170707
  14. RISPERDAL [Concomitant]
     Active Substance: RISPERIDONE
     Dosage: 3 MG, UNK
     Dates: start: 20170630, end: 20170630
  15. RISPERDAL [Concomitant]
     Active Substance: RISPERIDONE
     Dosage: 2 MG, UNK
     Dates: start: 20170703, end: 20170704
  16. TEMESTA                            /00273201/ [Concomitant]
     Active Substance: LORAZEPAM
     Indication: PRODUCT USED FOR UNKNOWN INDICATION
     Dosage: 3 MG, UNK
     Dates: start: 20170707, end: 20170719
  17. PRAXITEN [Concomitant]
     Active Substance: OXAZEPAM
     Dosage: 97.5 MG, UNK
     Route: 048
     Dates: start: 20170617, end: 20170617
  18. PRAXITEN [Concomitant]
     Active Substance: OXAZEPAM
     Dosage: 150 MG, UNK
     Route: 048
     Dates: start: 20170701, end: 20170704
  19. PANTOLOC                           /01263204/ [Concomitant]
     Active Substance: PANTOPRAZOLE SODIUM
     Indication: PRODUCT USED FOR UNKNOWN INDICATION
     Dosage: 40 MG, UNK
     Route: 048
     Dates: start: 20170614, end: 20170707
  20. RISPERDAL [Concomitant]
     Active Substance: RISPERIDONE
     Indication: PRODUCT USED FOR UNKNOWN INDICATION
     Dosage: 1 MG, UNK
     Dates: start: 20170626, end: 20170629
  21. RISPERDAL [Concomitant]
     Active Substance: RISPERIDONE
     Dosage: 1 MG, UNK
     Dates: start: 20170706, end: 20170706
  22. SEROQUEL [Suspect]
     Active Substance: QUETIAPINE FUMARATE
     Dosage: 300 MG, UNK
     Route: 048
     Dates: start: 20170617, end: 20170618
  23. PRAXITEN [Concomitant]
     Active Substance: OXAZEPAM
     Indication: PRODUCT USED FOR UNKNOWN INDICATION
     Dosage: 130 MG, UNK
     Route: 048
     Dates: start: 20170614, end: 20170616
  24. GLUCOPHAGE [Concomitant]
     Active Substance: METFORMIN HYDROCHLORIDE
     Indication: PRODUCT USED FOR UNKNOWN INDICATION
     Dosage: 500 MG, UNK
     Route: 048
     Dates: start: 20170614, end: 20170703
  25. MOLAXOLE [Concomitant]
     Active Substance: POLYETHYLENE GLYCOL 3350\POTASSIUM CHLORIDE\SODIUM BICARBONATE\SODIUM CHLORIDE
     Indication: PRODUCT USED FOR UNKNOWN INDICATION
     Dosage: 1 DF, UNK
     Dates: start: 20170614, end: 20170707
  26. LAEVOLAC [Concomitant]
     Active Substance: LACTULOSE
     Indication: PRODUCT USED FOR UNKNOWN INDICATION
     Dosage: 2 UNK, UNK
     Dates: start: 20170723
  27. PRAXITEN [Concomitant]
     Active Substance: OXAZEPAM
     Dosage: 40 MG, UNK
     Route: 048
     Dates: start: 20170619, end: 20170620
  28. RISPERDAL [Concomitant]
     Active Substance: RISPERIDONE
     Dosage: 1.5 MG, UNK
     Dates: start: 20170705, end: 20170705
  29. TEMESTA                            /00273201/ [Concomitant]
     Active Substance: LORAZEPAM
     Dosage: 2.5 MG, UNK
     Dates: start: 20170720
  30. AMANTADINE SULFATE [Concomitant]
     Active Substance: AMANTADINE SULFATE
     Indication: PRODUCT USED FOR UNKNOWN INDICATION
     Dosage: 200 MG, UNK
     Dates: start: 20170708, end: 20170719
  31. LEPONEX [Suspect]
     Active Substance: CLOZAPINE
     Dosage: 300 MG, UNK
     Route: 048
     Dates: start: 2017, end: 2017
  32. SEROQUEL [Suspect]
     Active Substance: QUETIAPINE FUMARATE
     Dosage: 175 MG, UNK
     Route: 048
     Dates: start: 20170620, end: 20170620
  33. AKINETON [Suspect]
     Active Substance: BIPERIDEN HYDROCHLORIDE
     Indication: PRODUCT USED FOR UNKNOWN INDICATION
     Dosage: 4 MG, UNK
     Route: 048
     Dates: start: 20170614, end: 20170622
  34. PRAXITEN [Concomitant]
     Active Substance: OXAZEPAM
     Dosage: 75 MG, UNK
     Route: 048
     Dates: start: 20170705, end: 20170706
  35. NACL [Concomitant]
     Active Substance: SODIUM CHLORIDE
     Indication: PRODUCT USED FOR UNKNOWN INDICATION
     Dosage: 2 DF, UNK
     Route: 048
     Dates: start: 20170614, end: 20170620
  36. ABILIFY [Concomitant]
     Active Substance: ARIPIPRAZOLE
     Dosage: 10 MG, UNK
     Dates: start: 20170727

REACTIONS (13)
  - Blood cholesterol increased [Recovering/Resolving]
  - C-reactive protein increased [Recovered/Resolved]
  - Delirium [Recovered/Resolved]
  - Blood triglycerides increased [Unknown]
  - Salivary hypersecretion [Unknown]
  - Pyrexia [Unknown]
  - Psychotic disorder [Unknown]
  - Blood pressure increased [Recovered/Resolved]
  - Heart rate increased [Recovered/Resolved]
  - Catatonia [Unknown]
  - Blood creatine phosphokinase increased [Recovering/Resolving]
  - Antipsychotic drug level increased [Unknown]
  - Neutrophil percentage increased [Recovered/Resolved]

NARRATIVE: CASE EVENT DATE: 20170614
